FAERS Safety Report 7412051-3 (Version None)
Quarter: 2011Q2

REPORT INFORMATION
  Report Type: 
  Country: None (occurrence: None)
  Receive Date: 20110413
  Receipt Date: 20110404
  Transmission Date: 20111010
  Serious: Yes (Other)
  Sender: FDA-Public Use
  Company Number: CA-ASTRAZENECA-2011SE20237

PATIENT
  Age: 86 Year
  Sex: Female

DRUGS (3)
  1. CRESTOR [Suspect]
     Indication: HYPERCHOLESTEROLAEMIA
     Route: 048
     Dates: start: 20070101
  2. FOSAMAX [Concomitant]
     Route: 048
  3. PANTOPRAZOLE [Concomitant]
     Route: 048
     Dates: start: 20110101

REACTIONS (2)
  - THYROID CANCER [None]
  - HYPERTHYROIDISM [None]
